FAERS Safety Report 10089866 (Version 1)
Quarter: 2014Q2

REPORT INFORMATION
  Report Type: Report from Study
  Country: PR (occurrence: PR)
  Receive Date: 20140421
  Receipt Date: 20140421
  Transmission Date: 20141212
  Serious: No
  Sender: FDA-Public Use
  Company Number: PR-ABBVIE-13P-131-1161710-00

PATIENT
  Age: 11 Year
  Sex: Female

DRUGS (1)
  1. LUPRON DEPOT-PED [Suspect]
     Indication: PRODUCT USED FOR UNKNOWN INDICATION

REACTIONS (3)
  - Oppositional defiant disorder [Unknown]
  - Psychomotor hyperactivity [Unknown]
  - Mood altered [Unknown]
